FAERS Safety Report 9757936 (Version 1)
Quarter: 2013Q4

REPORT INFORMATION
  Report Type: Report from Study
  Country: US (occurrence: US)
  Receive Date: 20131216
  Receipt Date: 20131216
  Transmission Date: 20140711
  Serious: Yes (Hospitalization, Other)
  Sender: FDA-Public Use
  Company Number: US-ROCHE-1313258

PATIENT
  Age: 87 Year
  Sex: Female
  Weight: 72.7 kg

DRUGS (16)
  1. RITUXIMAB [Suspect]
     Indication: CHRONIC LYMPHOCYTIC LEUKAEMIA
     Route: 042
     Dates: start: 20130820
  2. RITUXIMAB [Suspect]
     Route: 042
     Dates: start: 20130903
  3. VALGANCICLOVIR [Concomitant]
     Route: 065
  4. LEVAQUIN [Concomitant]
     Route: 065
     Dates: start: 20130921, end: 20131003
  5. DEXAMETHASONE [Concomitant]
  6. LATANOPROST [Concomitant]
  7. NYSTATIN [Concomitant]
  8. FENTANYL [Concomitant]
  9. ONDANSETRON [Concomitant]
  10. FOLIC ACID [Concomitant]
  11. COLACE [Concomitant]
  12. ESOMEPRAZOLE [Concomitant]
  13. CHLORHEXIDINE [Concomitant]
  14. SENNA [Concomitant]
  15. NASONEX [Concomitant]
  16. GS-1101 [Suspect]
     Indication: CHRONIC LYMPHOCYTIC LEUKAEMIA
     Route: 048

REACTIONS (3)
  - Pleural effusion [Not Recovered/Not Resolved]
  - Pneumonia [Not Recovered/Not Resolved]
  - Sepsis [Recovered/Resolved]
